FAERS Safety Report 7378410-2 (Version None)
Quarter: 2011Q1

REPORT INFORMATION
  Report Type: 
  Country: None (occurrence: None)
  Receive Date: 20110323
  Receipt Date: 20110323
  Transmission Date: 20110831
  Serious: Yes (Other)
  Sender: FDA-Public Use
  Company Number: None

PATIENT
  Age: 44 Year
  Sex: Female
  Weight: 115.6672 kg

DRUGS (1)
  1. FENTANYL-50 [Suspect]
     Indication: ANALGESIC THERAPY
     Dosage: 50 MCG Q3 D TOPICAL
     Route: 061
     Dates: start: 20110124

REACTIONS (1)
  - APPLICATION SITE ULCER [None]
